FAERS Safety Report 16133609 (Version 1)
Quarter: 2019Q1

REPORT INFORMATION
  Report Type: Spontaneous
  Country: IT (occurrence: IT)
  Receive Date: 20190329
  Receipt Date: 20190329
  Transmission Date: 20190418
  Serious: Yes (Hospitalization)
  Sender: FDA-Public Use
  Company Number: IT-ACCORD-116579

PATIENT
  Age: 76 Year
  Sex: Male

DRUGS (10)
  1. DUOPLAVIN [Concomitant]
     Active Substance: ASPIRIN\CLOPIDOGREL
     Indication: ACUTE CORONARY SYNDROME
     Dosage: STRENGTH 75 MG/100 MG FILM-COATED TABLETS
     Route: 048
     Dates: start: 20181114, end: 20181119
  2. POTASSIUM CANRENOATE SANDOZ [Concomitant]
     Route: 048
     Dates: start: 20181114
  3. FUROSEMIDE. [Suspect]
     Active Substance: FUROSEMIDE
     Indication: OEDEMA
     Route: 048
     Dates: start: 20181114, end: 20181219
  4. PANTOPRAZOLE DOC [Concomitant]
     Indication: GASTROOESOPHAGEAL REFLUX DISEASE
     Dosage: STRENGTH 20 MG GASTRO-RESISTANT TABLETS
     Route: 048
     Dates: start: 20181114, end: 20181219
  5. ZOLPIDEM RATIOPHARM [Concomitant]
     Indication: INSOMNIA
     Dosage: STRENGTH 10 MG FILM-COATED TABLETS
     Route: 048
     Dates: start: 20181115, end: 20181219
  6. THEO-DUR [Suspect]
     Active Substance: THEOPHYLLINE ANHYDROUS
     Indication: ASTHMA
     Dosage: STRENGTH 200 MG PROLONGED-RELEASE TABLETS
     Route: 048
     Dates: start: 20181116, end: 20181219
  7. TAREG [Concomitant]
     Active Substance: VALSARTAN
     Indication: HYPERTENSION
     Route: 048
     Dates: start: 20181114, end: 20181219
  8. SERETIDE [Concomitant]
     Active Substance: FLUTICASONE PROPIONATE\SALMETEROL XINAFOATE
     Indication: ASTHMA
     Dosage: STRENGTH 50 MICROGRAMS / 500 MICROGRAMS / DOSE OF POWDER PER INA
  9. ALFUZOSIN RATIOPHARM [Concomitant]
     Indication: BENIGN PROSTATIC HYPERPLASIA
     Dosage: STRENGTH 10 MG PROLONGED-RELEASE TABLETS
     Route: 048
     Dates: start: 20181114, end: 20181219
  10. AVODART [Concomitant]
     Active Substance: DUTASTERIDE
     Indication: BENIGN PROSTATIC HYPERPLASIA
     Route: 048
     Dates: start: 20181114, end: 20181219

REACTIONS (4)
  - Skin abrasion [Unknown]
  - Contusion [Unknown]
  - Fall [Unknown]
  - Orthostatic hypotension [Unknown]

NARRATIVE: CASE EVENT DATE: 20181122
